FAERS Safety Report 10178390 (Version 1)
Quarter: 2014Q2

REPORT INFORMATION
  Report Type: Other
  Country: GB (occurrence: GB)
  Receive Date: 20140519
  Receipt Date: 20140519
  Transmission Date: 20141212
  Serious: Yes (Other)
  Sender: FDA-Public Use
  Company Number: GB-LUPIN PHARMACEUTICALS INC.-E2B_00002012

PATIENT
  Age: 47 Year
  Sex: Female
  Weight: 63.5 kg

DRUGS (7)
  1. SIMVASTATIN [Suspect]
     Indication: GLOMERULONEPHRITIS
     Route: 048
  2. OMEPRAZOLE [Concomitant]
     Indication: PRODUCT USED FOR UNKNOWN INDICATION
     Route: 065
  3. PARACETAMOL [Concomitant]
     Indication: PRODUCT USED FOR UNKNOWN INDICATION
     Route: 065
  4. AMITRIPTYLINE [Concomitant]
     Indication: PRODUCT USED FOR UNKNOWN INDICATION
     Dosage: PROBABLY AT 60MG, BUT IT MAY HAVE BEEN 10MG DAILY
     Route: 065
  5. TRAMADOL [Concomitant]
     Indication: PRODUCT USED FOR UNKNOWN INDICATION
     Route: 065
  6. LORATADINE [Concomitant]
     Indication: PRODUCT USED FOR UNKNOWN INDICATION
     Route: 065
  7. FUROSEMIDE [Concomitant]
     Indication: PRODUCT USED FOR UNKNOWN INDICATION
     Dosage: 40 MG, PROBABLY
     Route: 065

REACTIONS (3)
  - Movement disorder [Recovered/Resolved with Sequelae]
  - Burning sensation [Recovered/Resolved]
  - Pain in extremity [Recovered/Resolved]
